FAERS Safety Report 6626539-6 (Version None)
Quarter: 2010Q1

REPORT INFORMATION
  Report Type: 
  Country: None (occurrence: None)
  Receive Date: 20100310
  Receipt Date: 20100225
  Transmission Date: 20100710
  Serious: Yes (Life-Threatening)
  Sender: FDA-Public Use
  Company Number: US-GENENTECH-296715

PATIENT
  Sex: Female
  Weight: 44.444 kg

DRUGS (6)
  1. RITUXAN [Suspect]
     Indication: RHEUMATOID ARTHRITIS
     Dosage: 375 MG, 1/WEEK
     Route: 042
     Dates: start: 20080821
  2. RITUXAN [Suspect]
     Dosage: 560 MG, 1/WEEK
     Route: 042
     Dates: start: 20080801, end: 20080912
  3. EPIVIR-HBV [Concomitant]
     Indication: DRUG USE FOR UNKNOWN INDICATION
     Dosage: UNK
     Dates: end: 20091001
  4. ATIVAN [Concomitant]
     Indication: DRUG USE FOR UNKNOWN INDICATION
     Dosage: 10 MG, UNK
  5. NEURONTIN [Concomitant]
     Indication: DRUG USE FOR UNKNOWN INDICATION
     Dosage: 300 MG, TID
  6. COMBIPATCH [Concomitant]
     Indication: DRUG USE FOR UNKNOWN INDICATION

REACTIONS (6)
  - CLUMSINESS [None]
  - DIABETES MELLITUS [None]
  - DIZZINESS [None]
  - HEPATITIS C [None]
  - HYPERTENSION [None]
  - SINUSITIS [None]
